FAERS Safety Report 4476951-9 (Version None)
Quarter: 2004Q4

REPORT INFORMATION
  Report Type: 
  Country: None (occurrence: None)
  Receive Date: 20041013
  Receipt Date: 20041004
  Transmission Date: 20050328
  Serious: Yes (Death, Life-Threatening)
  Sender: FDA-Public Use
  Company Number: 2004CG01973

PATIENT
  Age: 73 Year
  Sex: Male

DRUGS (8)
  1. ZESTRIL [Suspect]
     Dosage: 2.5 MG DAILY PO
     Route: 048
     Dates: end: 20040824
  2. GLUCOPHAGE [Suspect]
     Dosage: 1 G TID PO
     Route: 048
     Dates: end: 20040824
  3. PREVISCAN [Suspect]
     Dosage: 20 MG DAILY PO
     Route: 048
     Dates: start: 20040723, end: 20040824
  4. BURINEX [Suspect]
  5. DIGOXIN [Suspect]
  6. JOSIR [Suspect]
  7. ATARAX [Suspect]
  8. DIFFU K [Suspect]

REACTIONS (6)
  - BLOOD SODIUM DECREASED [None]
  - COMA [None]
  - DEHYDRATION [None]
  - DIARRHOEA [None]
  - RENAL FAILURE ACUTE [None]
  - WEIGHT DECREASED [None]
